FAERS Safety Report 23329580 (Version 2)
Quarter: 2024Q1

REPORT INFORMATION
  Report Type: Spontaneous
  Country: US (occurrence: US)
  Receive Date: 20231222
  Receipt Date: 20240213
  Transmission Date: 20240410
  Serious: No
  Sender: FDA-Public Use
  Company Number: US-JNJFOC-20231241876

PATIENT
  Age: 66 Year
  Sex: Male
  Weight: 81.72 kg

DRUGS (13)
  1. OPSUMIT [Suspect]
     Active Substance: MACITENTAN
     Indication: Product used for unknown indication
     Route: 048
     Dates: end: 2023
  2. TYVASO DPI [Suspect]
     Active Substance: TREPROSTINIL
     Indication: Pulmonary arterial hypertension
     Route: 045
     Dates: start: 20230814
  3. TYVASO DPI [Suspect]
     Active Substance: TREPROSTINIL
     Route: 045
     Dates: start: 20230814, end: 2023
  4. TYVASO DPI [Suspect]
     Active Substance: TREPROSTINIL
     Route: 045
  5. TYVASO DPI [Suspect]
     Active Substance: TREPROSTINIL
     Route: 045
     Dates: start: 2023, end: 202401
  6. ATORVASTATIN CALCIUM [Concomitant]
     Active Substance: ATORVASTATIN CALCIUM
  7. SPIRIVA RESPIMAT [Concomitant]
     Active Substance: TIOTROPIUM BROMIDE
  8. AMLODIPINE BESYLATE [Concomitant]
     Active Substance: AMLODIPINE BESYLATE
  9. SILDENAFIL CITRATE [Concomitant]
     Active Substance: SILDENAFIL CITRATE
  10. ELIQUIS [Concomitant]
     Active Substance: APIXABAN
  11. LISINOPRIL [Concomitant]
     Active Substance: LISINOPRIL
  12. OXYGEN [Concomitant]
     Active Substance: OXYGEN
  13. WIXELA INHUB [Concomitant]
     Active Substance: FLUTICASONE PROPIONATE\SALMETEROL XINAFOATE

REACTIONS (5)
  - Drug hypersensitivity [Unknown]
  - Rash pruritic [Unknown]
  - Cough [Unknown]
  - Rash [Recovering/Resolving]
  - Pain in extremity [Recovering/Resolving]
